FAERS Safety Report 9196898 (Version 6)
Quarter: 2015Q3

REPORT INFORMATION
  Report Type: Report from Study
  Country: AU (occurrence: AU)
  Receive Date: 20130328
  Receipt Date: 20150812
  Transmission Date: 20151125
  Serious: Yes (Death, Life-Threatening, Hospitalization, Other)
  Sender: FDA-Public Use
  Company Number: PHHY2013AU029596

PATIENT
  Age: 46 Year
  Sex: Male

DRUGS (13)
  1. CLOZARIL [Suspect]
     Active Substance: CLOZAPINE
     Indication: SCHIZOPHRENIA
     Dosage: 50 MG
     Route: 048
     Dates: start: 19950808
  2. LAMOTRIGINE. [Concomitant]
     Active Substance: LAMOTRIGINE
     Dosage: 100 MG, QD
     Route: 048
     Dates: start: 20130604
  3. CLOMIPRAMINE [Concomitant]
     Active Substance: CLOMIPRAMINE
     Indication: OBSESSIVE-COMPULSIVE DISORDER
     Dosage: 200 MG, NOCTE
     Route: 048
  4. LAMOTRIGINE. [Concomitant]
     Active Substance: LAMOTRIGINE
     Indication: SCHIZOAFFECTIVE DISORDER
     Dosage: 100 MG, BID
     Route: 048
  5. VALPROATE SODIUM. [Concomitant]
     Active Substance: VALPROATE SODIUM
     Dosage: 1000 MG (MANE + NOCTE)
     Route: 048
     Dates: start: 20130624
  6. VALPROATE SODIUM. [Concomitant]
     Active Substance: VALPROATE SODIUM
     Dosage: 750 MG, BID
     Route: 048
     Dates: start: 20130604
  7. CLOZARIL [Suspect]
     Active Substance: CLOZAPINE
     Dosage: 400 MG
     Route: 048
  8. VALPROATE SODIUM. [Concomitant]
     Active Substance: VALPROATE SODIUM
     Indication: SCHIZOAFFECTIVE DISORDER
     Dosage: 2500 DAILY (1000 MANE, 1500 NOCTE)
     Route: 048
  9. QUETIAPINE [Concomitant]
     Active Substance: QUETIAPINE
     Indication: PRODUCT USED FOR UNKNOWN INDICATION
     Dosage: 100 MG NOCTE
     Route: 065
  10. PANTOPRAZOLE [Concomitant]
     Active Substance: PANTOPRAZOLE SODIUM
     Indication: GASTROINTESTINAL INFECTION
     Dosage: UNK
     Route: 065
  11. CLOMIPRAMINE [Concomitant]
     Active Substance: CLOMIPRAMINE
     Dosage: 150 MG
     Dates: start: 20130531, end: 20130604
  12. CLOZARIL [Suspect]
     Active Substance: CLOZAPINE
     Dosage: 350 MG NOCTE
     Route: 048
  13. CLOZARIL [Suspect]
     Active Substance: CLOZAPINE
     Dosage: 300 MG NOCTE
     Route: 048

REACTIONS (22)
  - Respiratory distress [Fatal]
  - Post procedural sepsis [Recovering/Resolving]
  - Antipsychotic drug level increased [Unknown]
  - Incorrect dose administered [Unknown]
  - Small intestinal obstruction [Recovering/Resolving]
  - Procedural haemorrhage [Unknown]
  - Confusional state [Unknown]
  - Mental impairment [Unknown]
  - Monocyte count decreased [Unknown]
  - Malabsorption [Fatal]
  - Infection [Unknown]
  - Anaemia postoperative [Recovering/Resolving]
  - Malaise [Fatal]
  - Gastrointestinal cancer metastatic [Fatal]
  - Platelet count decreased [Not Recovered/Not Resolved]
  - Faecaloma [Unknown]
  - White blood cell count decreased [Recovered/Resolved]
  - Neutropenia [Recovered/Resolved]
  - Impaired gastric emptying [Fatal]
  - Rectal adenocarcinoma [Recovering/Resolving]
  - Lymphocyte count decreased [Unknown]
  - Platelet count increased [Not Recovered/Not Resolved]

NARRATIVE: CASE EVENT DATE: 20130326
